FAERS Safety Report 25223644 (Version 5)
Quarter: 2025Q4

REPORT INFORMATION
  Report Type: Report from Study
  Country: US (occurrence: US)
  Receive Date: 20250422
  Receipt Date: 20251025
  Transmission Date: 20260118
  Serious: Yes (Hospitalization)
  Sender: ABBVIE
  Company Number: US-ABBVIE-6237705

PATIENT
  Age: 49 Year
  Sex: Female
  Weight: 36 kg

DRUGS (7)
  1. SKYRIZI [Suspect]
     Active Substance: RISANKIZUMAB-RZAA
     Indication: Crohn^s disease
     Dosage: FORM STRENGTH: 360 MG
     Route: 058
     Dates: start: 20250612
  2. SKYRIZI [Suspect]
     Active Substance: RISANKIZUMAB-RZAA
     Indication: Crohn^s disease
     Dosage: END DATE- 2025?FORM STRENGTH: 600 MG
     Route: 042
     Dates: start: 20250313
  3. AZATHIOPRINE [Concomitant]
     Active Substance: AZATHIOPRINE
     Indication: Crohn^s disease
  4. PREDNISONE [Concomitant]
     Active Substance: PREDNISONE
     Indication: Crohn^s disease
  5. PANTOPRAZOLE [Concomitant]
     Active Substance: PANTOPRAZOLE
     Indication: Dyspepsia
  6. FENTANYL [Concomitant]
     Active Substance: FENTANYL
     Indication: Pain
  7. HYDROCODONE [Concomitant]
     Active Substance: HYDROCODONE
     Indication: Pain

REACTIONS (12)
  - Abdominal abscess [Recovered/Resolved]
  - Gastrointestinal infection [Recovered/Resolved]
  - Abscess intestinal [Recovered/Resolved]
  - Chest pain [Recovered/Resolved]
  - Pain [Recovering/Resolving]
  - Influenza [Unknown]
  - Abdominal abscess [Recovered/Resolved]
  - Skin disorder [Unknown]
  - Abdominal pain [Recovered/Resolved]
  - Abdominal pain [Recovered/Resolved]
  - Abdominal pain [Recovered/Resolved]
  - Abdominal pain [Recovered/Resolved]

NARRATIVE: CASE EVENT DATE: 20250101
